FAERS Safety Report 11114682 (Version 1)
Quarter: 2015Q2

REPORT INFORMATION
  Report Type: Spontaneous
  Country: CA (occurrence: None)
  Receive Date: 20150512
  Receipt Date: 20150512
  Transmission Date: 20150821
  Serious: Yes (Hospitalization)
  Sender: FDA-Public Use
  Company Number: 2015PRN00022

PATIENT
  Age: 28 Year
  Sex: Male

DRUGS (1)
  1. DONEPEZIL (DONEPEZIL) UNKNOWN [Suspect]
     Active Substance: DONEPEZIL

REACTIONS (2)
  - Intentional product use issue [None]
  - Mania [None]
